FAERS Safety Report 5835382-7 (Version None)
Quarter: 2008Q3

REPORT INFORMATION
  Report Type: 
  Country: None (occurrence: None)
  Receive Date: 20080806
  Receipt Date: 20080728
  Transmission Date: 20090109
  Serious: Yes (Hospitalization, Other)
  Sender: FDA-Public Use
  Company Number: US-MERCK-0608USA02226

PATIENT
  Age: 44 Year
  Sex: Female
  Weight: 96 kg

DRUGS (1)
  1. FOSAMAX [Suspect]
     Indication: OSTEOPOROSIS
     Route: 048
     Dates: start: 20000101, end: 20010101

REACTIONS (70)
  - ABDOMINAL DISTENSION [None]
  - ABDOMINAL PAIN [None]
  - ADENOMYOSIS [None]
  - ADVERSE EVENT [None]
  - AGORAPHOBIA [None]
  - AMNESIA [None]
  - ANAEMIA [None]
  - ANKLE FRACTURE [None]
  - ANXIETY [None]
  - ASTHENIA [None]
  - ASTHMA [None]
  - BACK PAIN [None]
  - BIPOLAR DISORDER [None]
  - BRONCHITIS CHRONIC [None]
  - CATARACT [None]
  - CERVICAL DYSPLASIA [None]
  - CHOLECYSTITIS [None]
  - CHRONIC OBSTRUCTIVE PULMONARY DISEASE [None]
  - CONSTIPATION [None]
  - CONTUSION [None]
  - CUSHING'S SYNDROME [None]
  - DENTAL CARIES [None]
  - DEPRESSION [None]
  - DIZZINESS [None]
  - DYSPHONIA [None]
  - EMPHYSEMA [None]
  - ENDOMETRIOSIS [None]
  - FALL [None]
  - FATIGUE [None]
  - GASTRIC DISORDER [None]
  - GASTRIC INFECTION [None]
  - GASTRIC ULCER [None]
  - GASTROOESOPHAGEAL REFLUX DISEASE [None]
  - HERPES ZOSTER [None]
  - HYPERGLYCAEMIA [None]
  - HYPERLIPIDAEMIA [None]
  - HYPERSENSITIVITY [None]
  - HYPERTENSION [None]
  - HYPOAESTHESIA [None]
  - HYPOKALAEMIA [None]
  - ILEUS PARALYTIC [None]
  - IMPAIRED GASTRIC EMPTYING [None]
  - IRRITABLE BOWEL SYNDROME [None]
  - JOINT STIFFNESS [None]
  - LARYNGITIS [None]
  - LOWER LIMB FRACTURE [None]
  - MUSCULOSKELETAL CHEST PAIN [None]
  - MYALGIA [None]
  - NAUSEA [None]
  - OEDEMA PERIPHERAL [None]
  - OESOPHAGEAL DISORDER [None]
  - ORAL CANDIDIASIS [None]
  - OSTEONECROSIS [None]
  - PANCREATITIS [None]
  - PANIC ATTACK [None]
  - PARAESTHESIA [None]
  - PEPTIC ULCER [None]
  - PNEUMONIA [None]
  - PULMONARY EOSINOPHILIA [None]
  - RECTOCELE [None]
  - RHINITIS [None]
  - RIB FRACTURE [None]
  - SEASONAL AFFECTIVE DISORDER [None]
  - SLEEP APNOEA SYNDROME [None]
  - TEMPOROMANDIBULAR JOINT SYNDROME [None]
  - TRIGEMINAL NEURALGIA [None]
  - UTERINE LEIOMYOMA [None]
  - VITAMIN D DEFICIENCY [None]
  - WEIGHT DECREASED [None]
  - WEIGHT INCREASED [None]
